FAERS Safety Report 7622538-6 (Version None)
Quarter: 2011Q3

REPORT INFORMATION
  Report Type: 
  Country: None (occurrence: None)
  Receive Date: 20110712
  Receipt Date: 20110629
  Transmission Date: 20111222
  Serious: Yes (Hospitalization)
  Sender: FDA-Public Use
  Company Number: 2011SP030502

PATIENT
  Sex: Female

DRUGS (1)
  1. MARVELON 21 (DESOGESTREL/ETHINYLESTRADIOL / 00570801/) [Suspect]
     Indication: PRODUCT USED FOR UNKNOWN INDICATION
     Dosage: 1 DF; QD; PO
     Route: 048
     Dates: end: 20110622

REACTIONS (2)
  - BRONCHITIS [None]
  - METRORRHAGIA [None]
